FAERS Safety Report 4507642-3 (Version None)
Quarter: 2004Q4

REPORT INFORMATION
  Report Type: 
  Country: None (occurrence: None)
  Receive Date: 20041112
  Receipt Date: 20041019
  Transmission Date: 20050328
  Serious: Yes (Hospitalization, Disabling)
  Sender: FDA-Public Use
  Company Number: WAES 0410BRA00444

PATIENT
  Sex: Female

DRUGS (11)
  1. VIOXX [Suspect]
     Indication: RHEUMATOID ARTHRITIS
     Dosage: 50 MG/DAILY PO
     Route: 048
     Dates: start: 20040714, end: 20041001
  2. ACETAMINOPHEN [Concomitant]
  3. AMITRIPTYLINE HYDROCHLORIDE [Concomitant]
  4. BLINDED THERAPY [Concomitant]
  5. BLINDED THERAPY [Concomitant]
  6. BROMAZEPAM [Concomitant]
  7. CAPTOPRIL [Concomitant]
  8. CELECOXIB [Concomitant]
  9. HYDROCHLOROTHIAZIDE [Concomitant]
  10. LEFLUNOMIDE [Concomitant]
  11. OMEPRAZOLE [Concomitant]

REACTIONS (4)
  - CARDIAC FAILURE CONGESTIVE [None]
  - DYSPNOEA [None]
  - DYSPNOEA PAROXYSMAL NOCTURNAL [None]
  - ORTHOPNOEA [None]
